FAERS Safety Report 16064494 (Version 1)
Quarter: 2019Q1

REPORT INFORMATION
  Report Type: Spontaneous
  Country: DE (occurrence: DE)
  Receive Date: 20190312
  Receipt Date: 20190312
  Transmission Date: 20190418
  Serious: Yes (Hospitalization, Other)
  Sender: FDA-Public Use
  Company Number: DE-WHANIN PHARM. CO., LTD.-2019M1022538

PATIENT
  Age: 52 Year
  Sex: Male
  Weight: 95.3 kg

DRUGS (2)
  1. LEPONEX [Suspect]
     Active Substance: CLOZAPINE
     Dosage: 500MG/DAY
     Route: 048
     Dates: start: 20021211, end: 20021219
  2. LEPONEX [Suspect]
     Active Substance: CLOZAPINE
     Indication: SCHIZOPHRENIA
     Dosage: 600 MILLIGRAM, QD
     Route: 048
     Dates: start: 20021108, end: 20021210

REACTIONS (5)
  - Electrocardiogram abnormal [Recovered/Resolved]
  - Hypertensive crisis [Recovered/Resolved]
  - Bundle branch block right [Recovered/Resolved]
  - Hypertension [Recovered/Resolved]
  - Bundle branch block left [Unknown]

NARRATIVE: CASE EVENT DATE: 20021211
